FAERS Safety Report 5559980-3 (Version None)
Quarter: 2007Q4

REPORT INFORMATION
  Report Type: 
  Country: None (occurrence: None)
  Receive Date: 20071214
  Receipt Date: 20071019
  Transmission Date: 20080405
  Serious: No
  Sender: FDA-Public Use
  Company Number: US-ABBOTT-07P-163-0421494-00

PATIENT
  Sex: Female
  Weight: 82.174 kg

DRUGS (5)
  1. HUMIRA [Suspect]
     Indication: CROHN'S DISEASE
     Route: 058
     Dates: start: 20070920, end: 20070920
  2. HUMIRA [Suspect]
     Route: 058
     Dates: start: 20071004, end: 20071004
  3. HUMIRA [Suspect]
     Route: 058
     Dates: start: 20071018
  4. ESCITALOPRAM OXALATE [Concomitant]
     Indication: DEPRESSION
     Route: 048
  5. PENTAZA [Concomitant]
     Indication: DRUG USE FOR UNKNOWN INDICATION
     Route: 048

REACTIONS (1)
  - FATIGUE [None]
